FAERS Safety Report 24769068 (Version 1)
Quarter: 2024Q4

REPORT INFORMATION
  Report Type: Report from Study
  Country: IN (occurrence: IN)
  Receive Date: 20241224
  Receipt Date: 20241224
  Transmission Date: 20250115
  Serious: Yes (Hospitalization, Other)
  Sender: CIPLA
  Company Number: IN-CIPLA LTD.-2024IN14901

PATIENT

DRUGS (4)
  1. WARFARIN SODIUM [Suspect]
     Active Substance: WARFARIN SODIUM
     Indication: Anticoagulant therapy
     Dosage: 1 DOSE AND 1 FREQUENCY (UNITS UNSPECIFIED), STRENGTH: 3 MG
     Route: 048
     Dates: start: 202111
  2. WARFARIN SODIUM [Suspect]
     Active Substance: WARFARIN SODIUM
     Dosage: 1 DOSE AND 1 FREQUENCY (UNITS UNSPECIFIED), STRENGTH: 5 MG
     Route: 048
     Dates: start: 202111
  3. ASPIRIN\ATORVASTATIN [Concomitant]
     Active Substance: ASPIRIN\ATORVASTATIN
     Indication: Product used for unknown indication
     Dosage: UNK, STRENGTH: 75/20 (UNITS UNSPECIFIED)
     Route: 065
  4. DILTIAZEM [Concomitant]
     Active Substance: DILTIAZEM
     Indication: Product used for unknown indication
     Dosage: UNK, STRENGTH: 30 (UNITS UNSPECIFIED)
     Route: 065

REACTIONS (2)
  - Cardiovascular disorder [Not Recovered/Not Resolved]
  - Chest discomfort [Not Recovered/Not Resolved]
